FAERS Safety Report 12492000 (Version 2)
Quarter: 2016Q3

REPORT INFORMATION
  Report Type: Spontaneous
  Country: US (occurrence: US)
  Receive Date: 20160623
  Receipt Date: 20160728
  Transmission Date: 20161109
  Serious: Yes (Hospitalization, Other)
  Sender: FDA-Public Use
  Company Number: US-WATSON-2016-13126

PATIENT
  Age: 84 Year
  Sex: Male
  Weight: 60 kg

DRUGS (11)
  1. VORICONAZOLE (UNKNOWN) [Interacting]
     Active Substance: VORICONAZOLE
     Indication: BRAIN OEDEMA
     Dosage: 200 MG, EVERY 12 HOURS
     Route: 042
  2. VORICONAZOLE (UNKNOWN) [Interacting]
     Active Substance: VORICONAZOLE
     Dosage: 300 MG, EVERY 12 HOURS
     Route: 042
  3. VANCOMYCIN [Concomitant]
     Active Substance: VANCOMYCIN
     Indication: PURULENCE
     Dosage: UNK
     Route: 065
  4. VORICONAZOLE (UNKNOWN) [Interacting]
     Active Substance: VORICONAZOLE
     Dosage: 4 MG/KG (250 MG) Q12H FOR ONE WEEK
     Route: 042
  5. DEXAMETHASONE (WATSON LABORATORIES) [Suspect]
     Active Substance: DEXAMETHASONE
     Indication: ANTIINFLAMMATORY THERAPY
     Route: 048
  6. VORICONAZOLE (UNKNOWN) [Interacting]
     Active Substance: VORICONAZOLE
     Dosage: 250 MG, EVERY 12 HOURS
     Route: 048
  7. VORICONAZOLE (UNKNOWN) [Interacting]
     Active Substance: VORICONAZOLE
     Dosage: 6 MG/KG (400 MG) EVERY 12 HOURS (Q12H) X 2 DOSES
     Route: 042
  8. VORICONAZOLE (UNKNOWN) [Interacting]
     Active Substance: VORICONAZOLE
     Dosage: 4 MG, Q8H
     Route: 048
  9. DEXAMETHASONE (WATSON LABORATORIES) [Interacting]
     Active Substance: DEXAMETHASONE
     Indication: BRAIN OEDEMA
  10. CEFEPIME [Concomitant]
     Active Substance: CEFEPIME HYDROCHLORIDE
     Indication: PURULENCE
     Dosage: UNK
     Route: 065
  11. METRONIDAZOLE. [Concomitant]
     Active Substance: METRONIDAZOLE
     Indication: PURULENCE
     Dosage: UNK
     Route: 065

REACTIONS (5)
  - Disease progression [Recovering/Resolving]
  - Hypophagia [Recovering/Resolving]
  - Cognitive disorder [Recovering/Resolving]
  - Drug level below therapeutic [Recovering/Resolving]
  - Drug interaction [Recovering/Resolving]
